FAERS Safety Report 20771221 (Version 1)
Quarter: 2022Q2

REPORT INFORMATION
  Report Type: Spontaneous
  Country: US (occurrence: US)
  Receive Date: 20220429
  Receipt Date: 20220429
  Transmission Date: 20220721
  Serious: No
  Sender: FDA-Public Use
  Company Number: US-PFIZER INC-2016378222

PATIENT
  Age: 84 Year
  Sex: Female

DRUGS (14)
  1. LYRICA [Suspect]
     Active Substance: PREGABALIN
     Dosage: UNK
  2. PROZAC [Concomitant]
     Active Substance: FLUOXETINE HYDROCHLORIDE
     Dosage: 30 1X/DAY
  3. ATIVAN [Concomitant]
     Active Substance: LORAZEPAM
     Dosage: UNK, 5 AS NEEDED
  4. COREG [Concomitant]
     Active Substance: CARVEDILOL
     Dosage: 25, 2X/DAY
  5. GUANFACINE [Concomitant]
     Active Substance: GUANFACINE
     Dosage: 1 UNK, 2X/DAY
  6. HYDRALAZINE [Concomitant]
     Active Substance: HYDRALAZINE HYDROCHLORIDE
     Dosage: 10 UNK, 4X/DAY
  7. HYDROCHLOROTHIAZIDE [Concomitant]
     Active Substance: HYDROCHLOROTHIAZIDE
     Dosage: 25 UNK, 1X/DAY
  8. LISINOPRIL [Concomitant]
     Active Substance: LISINOPRIL
     Dosage: 40 UNK, 1X/DAY
  9. GLUCOPHAGE [Concomitant]
     Active Substance: METFORMIN HYDROCHLORIDE
     Dosage: 500 UNK, 2X/DAY
  10. MIRAPEX [Concomitant]
     Active Substance: PRAMIPEXOLE DIHYDROCHLORIDE
     Dosage: 0.25 UNK, 1X/DAY
  11. OMEPRAZOLE [Concomitant]
     Active Substance: OMEPRAZOLE
     Dosage: 40 UNK, 1X/DAY
  12. OXYBUTYNIN [Concomitant]
     Active Substance: OXYBUTYNIN
     Dosage: 10 UNK, 1X/DAY
  13. FLONASE ALLERGY RELIEF [Concomitant]
     Active Substance: FLUTICASONE PROPIONATE
     Dosage: 50 UG, 1X/DAY
  14. ASPIRIN [Concomitant]
     Active Substance: ASPIRIN
     Dosage: 325 UNK, 1X/DAY

REACTIONS (3)
  - Hypersensitivity [Unknown]
  - Hypoacusis [Unknown]
  - Rhinorrhoea [Unknown]
